FAERS Safety Report 8517918-0 (Version None)
Quarter: 2012Q3

REPORT INFORMATION
  Report Type: 
  Country: None (occurrence: None)
  Receive Date: 20120718
  Receipt Date: 20110805
  Transmission Date: 20120928
  Serious: Yes (Other)
  Sender: FDA-Public Use
  Company Number: US-BRISTOL-MYERS SQUIBB COMPANY-15908262

PATIENT
  Sex: Female

DRUGS (3)
  1. ASPIRIN [Suspect]
     Dates: end: 20110101
  2. MULTAQ [Suspect]
     Dates: end: 20110503
  3. COUMADIN [Suspect]
     Dates: end: 20110101

REACTIONS (3)
  - RECTAL HAEMORRHAGE [None]
  - MALAISE [None]
  - VOMITING [None]
